FAERS Safety Report 7888080-2 (Version None)
Quarter: 2011Q4

REPORT INFORMATION
  Report Type: 
  Country: None (occurrence: None)
  Receive Date: 20111103
  Receipt Date: 20111031
  Transmission Date: 20120403
  Serious: Yes (Other)
  Sender: FDA-Public Use
  Company Number: US-TEVA-261796USA

PATIENT
  Sex: Female

DRUGS (1)
  1. CLARAVIS [Suspect]
     Dosage: 80 MILLIGRAM;
     Route: 048
     Dates: start: 20100610, end: 20100907

REACTIONS (5)
  - UNINTENDED PREGNANCY [None]
  - ANXIETY [None]
  - MATERNAL EXPOSURE BEFORE PREGNANCY [None]
  - CONDITION AGGRAVATED [None]
  - CRYING [None]
